FAERS Safety Report 9753769 (Version 1)
Quarter: 2013Q4

REPORT INFORMATION
  Report Type: Spontaneous
  Country: US (occurrence: US)
  Receive Date: 20131213
  Receipt Date: 20131213
  Transmission Date: 20140711
  Serious: No
  Sender: FDA-Public Use
  Company Number: US-GILEAD-2010-0027017

PATIENT
  Sex: Female
  Weight: 72.71 kg

DRUGS (29)
  1. LETAIRIS [Suspect]
     Indication: PULMONARY ARTERIAL HYPERTENSION
     Route: 048
     Dates: start: 20100129
  2. REVATIO [Concomitant]
  3. NORVASC [Concomitant]
  4. DIOVAN [Concomitant]
  5. MEDROL [Concomitant]
  6. TOBRADEX [Concomitant]
  7. AMBIEN [Concomitant]
  8. OXYCODONE [Concomitant]
  9. ZITHROMAX [Concomitant]
  10. ALPHAGAN [Concomitant]
  11. ERYTHROMYCIN [Concomitant]
  12. PRILOSEC [Concomitant]
  13. MUCINEX [Concomitant]
  14. IMODIUM A-D [Concomitant]
  15. FOLIC ACID [Concomitant]
  16. ASPIRIN [Concomitant]
  17. CITRUCEL [Concomitant]
  18. ADVIL [Concomitant]
  19. TYLENOL [Concomitant]
  20. MENTAX [Concomitant]
  21. SOD CHLORIDE [Concomitant]
  22. STERILE WATER [Concomitant]
  23. OXYGEN [Concomitant]
  24. MULTIVITAMIN [Concomitant]
  25. ESTER-C [Concomitant]
  26. GLUCOSAMINE CHONDR [Concomitant]
  27. CALCIUM+D [Concomitant]
  28. ANUSOL HC [Concomitant]
  29. PRIMROSE SOFTGEL [Concomitant]

REACTIONS (2)
  - Fatigue [Unknown]
  - Oedema [Unknown]
